FAERS Safety Report 6058774-2 (Version None)
Quarter: 2009Q1

REPORT INFORMATION
  Report Type: 
  Country: None (occurrence: None)
  Receive Date: 20090130
  Receipt Date: 20090123
  Transmission Date: 20090719
  Serious: Yes (Other)
  Sender: FDA-Public Use
  Company Number: US-ALLERGAN-0815417US

PATIENT
  Sex: Female

DRUGS (3)
  1. BOTOX COSMETIC [Suspect]
     Indication: SKIN WRINKLING
     Dosage: 25 UNITS, SINGLE
     Route: 030
     Dates: start: 20081120, end: 20081120
  2. NALTREXONE [Concomitant]
     Indication: MULTIPLE SCLEROSIS
     Dosage: LOW DOSE
  3. ALAVERT [Concomitant]
     Indication: HYPERSENSITIVITY

REACTIONS (12)
  - ASTHENIA [None]
  - BODY TEMPERATURE INCREASED [None]
  - CHEST DISCOMFORT [None]
  - CHILLS [None]
  - DRY MOUTH [None]
  - DYSPHAGIA [None]
  - DYSPNOEA [None]
  - FATIGUE [None]
  - INFLUENZA [None]
  - OROPHARYNGEAL PAIN [None]
  - PAIN [None]
  - THROAT TIGHTNESS [None]
